FAERS Safety Report 6499812-2 (Version None)
Quarter: 2009Q4

REPORT INFORMATION
  Report Type: 
  Country: None (occurrence: None)
  Receive Date: 20091214
  Receipt Date: 20091208
  Transmission Date: 20100525
  Serious: No
  Sender: FDA-Public Use
  Company Number: 20097792

PATIENT
  Age: 14 Year
  Sex: Male

DRUGS (1)
  1. LIORESAL [Suspect]
     Indication: MUSCLE SPASTICITY
     Dosage: 150-283.9 MCG, DAILY, INTRATHECAL
     Route: 037

REACTIONS (2)
  - IMPAIRED HEALING [None]
  - IMPLANT SITE INFECTION [None]
